FAERS Safety Report 6116889-4 (Version None)
Quarter: 2009Q1

REPORT INFORMATION
  Report Type: 
  Country: None (occurrence: None)
  Receive Date: 20090314
  Receipt Date: 20081231
  Transmission Date: 20090719
  Serious: No
  Sender: FDA-Public Use
  Company Number: US-ABBOTT-08P-163-0495434-00

PATIENT
  Sex: Female
  Weight: 58.112 kg

DRUGS (5)
  1. HUMIRA [Suspect]
     Indication: RHEUMATOID ARTHRITIS
     Route: 058
     Dates: start: 20060101, end: 20060101
  2. HUMIRA [Suspect]
     Route: 058
     Dates: start: 20081201
  3. PREDNISONE [Concomitant]
     Indication: RHEUMATOID ARTHRITIS
     Route: 048
  4. UNKNOWN PAIN KILLER [Concomitant]
     Indication: PAIN
     Dosage: PRN
  5. UNKNOWN MEDICATION [Concomitant]
     Indication: GASTRIC DISORDER

REACTIONS (2)
  - ARTHRALGIA [None]
  - PAIN [None]
